FAERS Safety Report 8373677-6 (Version None)
Quarter: 2012Q2

REPORT INFORMATION
  Report Type: 
  Country: None (occurrence: None)
  Receive Date: 20120521
  Receipt Date: 20120511
  Transmission Date: 20120825
  Serious: Yes (Life-Threatening)
  Sender: FDA-Public Use
  Company Number: JP-BRISTOL-MYERS SQUIBB COMPANY-15760630

PATIENT
  Age: 76 Year
  Sex: Female

DRUGS (9)
  1. ORENCIA [Suspect]
     Indication: RHEUMATOID ARTHRITIS
     Dosage: 3 TREATMENTS
     Route: 041
     Dates: start: 20110303
  2. UREA [Concomitant]
  3. OMEPRAZOLE [Concomitant]
  4. INDOMETHACIN [Concomitant]
  5. ALFAROL [Concomitant]
  6. CELECOXIB [Concomitant]
  7. BUCILLAMINE [Suspect]
  8. MUCODYNE [Concomitant]
  9. ALENDRONATE SODIUM [Concomitant]

REACTIONS (1)
  - HEPATIC FUNCTION ABNORMAL [None]
